FAERS Safety Report 4335438-4 (Version None)
Quarter: 2004Q2

REPORT INFORMATION
  Report Type: 
  Country: None (occurrence: None)
  Receive Date: 20040408
  Receipt Date: 20040408
  Transmission Date: 20050107
  Serious: Yes (Life-Threatening, Hospitalization, Other)
  Sender: FDA-Public Use
  Company Number: None

PATIENT
  Age: 56 Year
  Sex: Female
  Weight: 61.6892 kg

DRUGS (2)
  1. NARDIL [Suspect]
     Indication: DEPRESSION
     Dosage: 15MG 6 X  PER DAY  ORAL
     Route: 048
     Dates: start: 19880715, end: 20040208
  2. NARDIL [Suspect]
     Indication: PANIC DISORDER
     Dosage: 15MG 6 X  PER DAY  ORAL
     Route: 048
     Dates: start: 19880715, end: 20040208

REACTIONS (10)
  - ABNORMAL BEHAVIOUR [None]
  - ANOREXIA [None]
  - CRYING [None]
  - DEPERSONALISATION [None]
  - DISSOCIATION [None]
  - DRUG EFFECT DECREASED [None]
  - FAMILY STRESS [None]
  - INSOMNIA [None]
  - MEMORY IMPAIRMENT [None]
  - PHARMACEUTICAL PRODUCT COMPLAINT [None]
